FAERS Safety Report 9688647 (Version 2)
Quarter: 2013Q4

REPORT INFORMATION
  Report Type: Spontaneous
  Country: US (occurrence: CA)
  Receive Date: 20131114
  Receipt Date: 20131217
  Transmission Date: 20140711
  Serious: Yes (Hospitalization, Other)
  Sender: FDA-Public Use
  Company Number: CA-FRI-1000051250

PATIENT
  Age: 75 Year
  Sex: Male
  Weight: 77 kg

DRUGS (8)
  1. ROFLUMILAST [Suspect]
     Dosage: 250 MCG
     Route: 048
     Dates: start: 201310
  2. ROFLUMILAST [Suspect]
     Dosage: 125 MCG
     Route: 048
     Dates: end: 20131024
  3. FERROUS GLUCONATE [Concomitant]
  4. CEFUROXIME [Concomitant]
  5. DIAMICRON [Concomitant]
  6. PLAVIX [Concomitant]
  7. LIPITOR [Concomitant]
  8. METOPROLOL [Concomitant]

REACTIONS (5)
  - Myocardial infarction [Recovered/Resolved]
  - Colitis [Unknown]
  - Incorrect dose administered [Unknown]
  - Dyspepsia [Recovered/Resolved]
  - Diarrhoea [Recovered/Resolved]
